FAERS Safety Report 12780302 (Version 1)
Quarter: 2016Q3

REPORT INFORMATION
  Report Type: Spontaneous
  Country: US (occurrence: US)
  Receive Date: 20160923
  Receipt Date: 20160923
  Transmission Date: 20161109
  Serious: Yes (Other)
  Sender: FDA-Public Use
  Company Number: None

PATIENT
  Age: 46 Year
  Sex: Female

DRUGS (1)
  1. HUMIRA [Suspect]
     Active Substance: ADALIMUMAB
     Indication: CROHN^S DISEASE
     Dosage: OTHER STRENGTH:;OTHER DOSE:;OTHER FREQUENCY:EVERY 14 DAYS;OTHER ROUTE:
     Route: 058
     Dates: start: 20160325, end: 20160923

REACTIONS (1)
  - Psoriasis [None]

NARRATIVE: CASE EVENT DATE: 20160901
